FAERS Safety Report 10027361 (Version 1)
Quarter: 2014Q1

REPORT INFORMATION
  Report Type: Spontaneous
  Country: IT (occurrence: None)
  Receive Date: 20140318
  Receipt Date: 20140318
  Transmission Date: 20141002
  Serious: Yes (Other)
  Sender: FDA-Public Use
  Company Number: AUR-APL-2014-02711

PATIENT
  Age: 61 Year
  Sex: Female

DRUGS (5)
  1. AMOXICILLIN [Suspect]
     Indication: TOOTHACHE
     Dates: start: 20140223, end: 20140226
  2. NORVASC [Concomitant]
  3. CARDIRENE [Concomitant]
  4. TORVAST [Concomitant]
  5. BISOPROLOL HEMIFUMARATE [Concomitant]

REACTIONS (1)
  - Angioedema [None]
